FAERS Safety Report 5347477-5 (Version None)
Quarter: 2007Q2

REPORT INFORMATION
  Report Type: 
  Country: None (occurrence: None)
  Receive Date: 20070604
  Receipt Date: 20070604
  Transmission Date: 20071010
  Serious: Yes (Death)
  Sender: FDA-Public Use
  Company Number: None

PATIENT
  Age: 93 Year
  Sex: Female
  Weight: 58.0604 kg

DRUGS (2)
  1. AVASTIN [Suspect]
     Indication: MACULAR DEGENERATION
     Dosage: 1.25MG ONCE 031
     Dates: start: 20060412
  2. VISUDYNE [Suspect]
     Dosage: 9.6MG ONCE 040
     Dates: start: 20060412

REACTIONS (1)
  - DEATH [None]
